FAERS Safety Report 23263084 (Version 2)
Quarter: 2023Q4

REPORT INFORMATION
  Report Type: Spontaneous
  Country: CO (occurrence: CO)
  Receive Date: 20231205
  Receipt Date: 20231218
  Transmission Date: 20240110
  Serious: Yes (Other)
  Sender: FDA-Public Use
  Company Number: CO-BAYER-2023A173995

PATIENT
  Age: 28 Year
  Sex: Female
  Weight: 87 kg

DRUGS (3)
  1. ULTRAVIST [Suspect]
     Active Substance: IOPROMIDE
     Indication: Endometrial disorder
     Dosage: 77 ML, ONCE
     Route: 042
     Dates: start: 20231129, end: 20231129
  2. ULTRAVIST [Suspect]
     Active Substance: IOPROMIDE
     Indication: Computerised tomogram pelvis
  3. SODIUM CHLORIDE [Concomitant]
     Active Substance: SODIUM CHLORIDE
     Dosage: 20 ML, ONCE, TEST INJECTION
     Route: 042
     Dates: start: 20231129, end: 20231129

REACTIONS (4)
  - Urticaria [Recovered/Resolved]
  - Headache [Recovered/Resolved]
  - Blood pressure increased [Recovering/Resolving]
  - Respiratory rate increased [Recovered/Resolved]

NARRATIVE: CASE EVENT DATE: 20231129
